FAERS Safety Report 9104948 (Version 1)
Quarter: 2013Q1

REPORT INFORMATION
  Report Type: Spontaneous
  Country: BR (occurrence: BR)
  Receive Date: 20130220
  Receipt Date: 20130220
  Transmission Date: 20140127
  Serious: Yes (Other)
  Sender: FDA-Public Use
  Company Number: BR-PFIZER INC-2013062574

PATIENT
  Age: 64 Year
  Sex: Male
  Weight: 63 kg

DRUGS (3)
  1. EFEXOR XR [Suspect]
     Dosage: UNK, 2X/DAY
     Route: 048
     Dates: start: 20121107, end: 2012
  2. EFEXOR XR [Suspect]
     Dosage: 150 MG, 2X/DAY
     Route: 048
     Dates: start: 201212
  3. DIAZEPAM [Concomitant]
     Indication: DEPRESSION
     Dosage: UNK, 2X/DAY
     Dates: start: 2004

REACTIONS (3)
  - Disease progression [Unknown]
  - Depression [Unknown]
  - Bedridden [Unknown]
